FAERS Safety Report 6784684-9 (Version None)
Quarter: 2010Q2

REPORT INFORMATION
  Report Type: 
  Country: None (occurrence: None)
  Receive Date: 20100520
  Receipt Date: 20080813
  Transmission Date: 20101027
  Serious: Yes (Other)
  Sender: FDA-Public Use
  Company Number: 2009255313

PATIENT
  Age: 65 Year
  Sex: Female
  Weight: 84 kg

DRUGS (8)
  1. PROVERA [Suspect]
     Indication: HORMONE REPLACEMENT THERAPY
     Dosage: 2.5 MG, ORAL
     Route: 048
     Dates: start: 19840801, end: 19940901
  2. PREMARIN [Suspect]
     Indication: HORMONE REPLACEMENT THERAPY
     Dosage: 0.625 MG ; 0.9 MG
     Dates: start: 19840801, end: 19940901
  3. PREMARIN [Suspect]
     Indication: HORMONE REPLACEMENT THERAPY
     Dosage: 0.625 MG ; 0.9 MG
     Dates: start: 19980101
  4. PREMPRO [Suspect]
     Indication: HORMONE REPLACEMENT THERAPY
     Dosage: 0.625/2.5MG
     Dates: start: 19940901, end: 20030101
  5. LISINOPRIL [Concomitant]
  6. ZOCOR [Concomitant]
  7. XANAX [Concomitant]
  8. GLUCOPHAGE [Concomitant]

REACTIONS (1)
  - BREAST CANCER FEMALE [None]
